FAERS Safety Report 6715679-9 (Version None)
Quarter: 2010Q2

REPORT INFORMATION
  Report Type: 
  Country: None (occurrence: None)
  Receive Date: 20100507
  Receipt Date: 20091229
  Transmission Date: 20101027
  Serious: No
  Sender: FDA-Public Use
  Company Number: A0836201A

PATIENT
  Sex: Female

DRUGS (6)
  1. DYNACIRC CR [Suspect]
     Indication: HYPERTENSION
     Dosage: 5MG PER DAY
     Route: 048
     Dates: start: 20081201
  2. COUMADIN [Concomitant]
  3. VITAMIN D [Concomitant]
  4. MULTI-VITAMIN [Concomitant]
  5. LANOXIN [Concomitant]
  6. ANTIBIOTIC [Concomitant]

REACTIONS (2)
  - BLOOD URINE PRESENT [None]
  - TREMOR [None]
